FAERS Safety Report 5613166-2 (Version None)
Quarter: 2008Q1

REPORT INFORMATION
  Report Type: 
  Country: None (occurrence: None)
  Receive Date: 20080129
  Receipt Date: 20080117
  Transmission Date: 20080703
  Serious: Yes (Other)
  Sender: FDA-Public Use
  Company Number: 2007S1013294

PATIENT
  Age: 13 Year
  Sex: Female
  Weight: 37.195 kg

DRUGS (6)
  1. ALBUTEROL SULFALE INHALATION SOLUTION [Suspect]
     Indication: HYPERSENSITIVITY
     Dosage: 2.5 ML; AS NEEDED; INHALATION
     Route: 055
     Dates: start: 19980101
  2. PROGRAF [Concomitant]
  3. SODIUM BICARBONATE [Concomitant]
  4. PREDNISONE TAB [Concomitant]
  5. PEPCID [Concomitant]
  6. EPIPEN [Concomitant]

REACTIONS (2)
  - BRONCHOSPASM [None]
  - DYSPNOEA [None]
